FAERS Safety Report 5854893-1 (Version None)
Quarter: 2008Q3

REPORT INFORMATION
  Report Type: 
  Country: None (occurrence: None)
  Receive Date: 20080822
  Receipt Date: 20080228
  Transmission Date: 20090109
  Serious: No
  Sender: FDA-Public Use
  Company Number: US-ABBOTT-08P-163-0440645-00

PATIENT
  Sex: Female
  Weight: 55.842 kg

DRUGS (6)
  1. SYNTHROID [Suspect]
     Indication: HYPOTHYROIDISM
     Dosage: DOSE INCREASE
     Route: 048
     Dates: start: 20030101, end: 20030101
  2. SYNTHROID [Suspect]
     Route: 048
     Dates: start: 19830101, end: 20030101
  3. SYNTHROID [Suspect]
     Route: 048
     Dates: start: 20030101
  4. VITAMIN B [Concomitant]
     Indication: VITAMIN SUPPLEMENTATION
     Route: 048
  5. CALCIUM W/MAGNESIUM [Concomitant]
     Indication: MINERAL SUPPLEMENTATION
     Route: 048
  6. ERGOCALCIFEROL [Concomitant]
     Indication: VITAMIN SUPPLEMENTATION
     Route: 048

REACTIONS (1)
  - PALPITATIONS [None]
